FAERS Safety Report 8066809-0 (Version None)
Quarter: 2012Q1

REPORT INFORMATION
  Report Type: 
  Country: None (occurrence: None)
  Receive Date: 20120124
  Receipt Date: 20120116
  Transmission Date: 20120608
  Serious: Yes (Disabling)
  Sender: FDA-Public Use
  Company Number: PHHY2011JP108184

PATIENT
  Age: 92 Year
  Sex: Female

DRUGS (7)
  1. YOKUKAN-SAN [Concomitant]
     Indication: BEHAVIOURAL AND PSYCHIATRIC SYMPTOMS OF DEMENTIA
     Dosage: 2.5 G, TID
     Dates: start: 20100802
  2. RISPERDAL [Concomitant]
     Dosage: 0.5 MG, ONCE A DAY IN THE MORNING
     Dates: start: 20100426, end: 20111130
  3. RIVASTIGMINE [Suspect]
     Indication: DEMENTIA ALZHEIMER'S TYPE
     Dosage: 4.5 MG, DAILY
     Route: 062
     Dates: start: 20110728, end: 20110824
  4. ARICEPT [Concomitant]
     Dosage: 5 MG, QD
     Dates: start: 20100426
  5. RISPERDAL [Concomitant]
     Dosage: 0.5 MG, ONCE A DAY IN THE EVENING
     Dates: start: 20100802
  6. RIVASTIGMINE [Suspect]
     Dosage: 9 MG, DAILY
     Route: 062
     Dates: start: 20110825, end: 20111005
  7. RIVASTIGMINE [Suspect]
     Dosage: 13.5 MG, DAILY
     Route: 062
     Dates: start: 20111006, end: 20111031

REACTIONS (7)
  - RASH PRURITIC [None]
  - APPLICATION SITE SWELLING [None]
  - PURULENT DISCHARGE [None]
  - PEMPHIGOID [None]
  - BLISTER [None]
  - ECZEMA [None]
  - SPEECH DISORDER [None]
